FAERS Safety Report 9278770 (Version 1)
Quarter: 2013Q2

REPORT INFORMATION
  Report Type: Spontaneous
  Country: US (occurrence: None)
  Receive Date: 20130506
  Receipt Date: 20130506
  Transmission Date: 20140414
  Serious: Yes (Hospitalization)
  Sender: FDA-Public Use
  Company Number: None

PATIENT
  Age: 69 Year
  Sex: Male
  Weight: 75.4 kg

DRUGS (1)
  1. POSACONAZOLE [Suspect]
     Dosage: 400 MG BID PO
     Route: 048
     Dates: start: 20130314, end: 20130430

REACTIONS (3)
  - Nausea [None]
  - Vomiting [None]
  - Lung consolidation [None]
